FAERS Safety Report 8279710-4 (Version None)
Quarter: 2012Q2

REPORT INFORMATION
  Report Type: 
  Country: None (occurrence: None)
  Receive Date: 20120412
  Receipt Date: 20111101
  Transmission Date: 20120825
  Serious: No
  Sender: FDA-Public Use
  Company Number: US-ASTRAZENECA-2011SE30155

PATIENT
  Age: 57 Year
  Sex: Female
  Weight: 71.7 kg

DRUGS (4)
  1. NEXIUM [Suspect]
     Indication: GASTROOESOPHAGEAL REFLUX DISEASE
     Route: 048
     Dates: start: 20110516, end: 20110926
  2. NEXIUM [Suspect]
     Route: 048
  3. NEXIUM [Suspect]
     Route: 048
  4. PREVACID [Concomitant]

REACTIONS (15)
  - HEART RATE IRREGULAR [None]
  - THROAT IRRITATION [None]
  - PALPITATIONS [None]
  - LUNG INFECTION [None]
  - WRONG TECHNIQUE IN DRUG USAGE PROCESS [None]
  - NON-CARDIAC CHEST PAIN [None]
  - TREATMENT NONCOMPLIANCE [None]
  - MALAISE [None]
  - FLATULENCE [None]
  - APHONIA [None]
  - DYSPHAGIA [None]
  - FEELING ABNORMAL [None]
  - DIARRHOEA [None]
  - HEART VALVE INCOMPETENCE [None]
  - ABDOMINAL DISTENSION [None]
